FAERS Safety Report 23357154 (Version 2)
Quarter: 2024Q2

REPORT INFORMATION
  Report Type: Spontaneous
  Country: US (occurrence: US)
  Receive Date: 20240102
  Receipt Date: 20240403
  Transmission Date: 20240716
  Serious: Yes (Death)
  Sender: FDA-Public Use
  Company Number: US-PFIZER INC-2021130278

PATIENT
  Age: 43 Year
  Sex: Female

DRUGS (1)
  1. NIVESTYM [Suspect]
     Active Substance: FILGRASTIM-AAFI
     Indication: Plasma cell myeloma
     Dosage: 780 MG, DAILY

REACTIONS (2)
  - Death [Fatal]
  - Off label use [Unknown]
